FAERS Safety Report 12724525 (Version 2)
Quarter: 2017Q2

REPORT INFORMATION
  Report Type: Report from Study
  Country: None (occurrence: BR)
  Receive Date: 20160908
  Receipt Date: 20170629
  Transmission Date: 20170830
  Serious: Yes (Other)
  Sender: FDA-Public Use
  Company Number: BR-ABBVIE-16P-020-1721754-00

PATIENT
  Sex: Female
  Weight: 64 kg

DRUGS (4)
  1. SYNTHROID [Suspect]
     Active Substance: LEVOTHYROXINE SODIUM
     Indication: HYPOTHYROIDISM
     Dosage: 25 MCG; 30 MINUTES BEFORE BREAKFAST
     Route: 048
     Dates: start: 201404
  2. LOSARTAN. [Concomitant]
     Active Substance: LOSARTAN
     Indication: BLOOD PRESSURE MEASUREMENT
     Dosage: DIALY DOSE: 100 MG (50MG IN THE MORNING AND 50MG AFTERNOON)
     Dates: start: 1987
  3. SELOZOK [Concomitant]
     Active Substance: METOPROLOL SUCCINATE
     Indication: BLOOD PRESSURE MEASUREMENT
     Dosage: DAILY DOSE: 100MG (50 MG IN THE MORNING AND 50MG AT NIGHT)
     Dates: start: 1987
  4. HIGROTON [Concomitant]
     Active Substance: CHLORTHALIDONE
     Indication: BLOOD PRESSURE MEASUREMENT
     Dosage: 25 MG IN THE MORNING
     Dates: start: 1987

REACTIONS (1)
  - Device loosening [Recovered/Resolved]
